FAERS Safety Report 8770394 (Version 3)
Quarter: 2012Q4

REPORT INFORMATION
  Report Type: 
  Country: CL (occurrence: CL)
  Receive Date: 20120906
  Receipt Date: 20121023
  Transmission Date: 20130627
  Serious: Yes (Hospitalization)
  Sender: FDA-Public Use
  Company Number: PHHY2012CL074804

PATIENT
  Sex: Female

DRUGS (3)
  1. TASIGNA [Suspect]
     Indication: CHRONIC MYELOID LEUKAEMIA
     Dosage: 300 mg, Q12H
     Route: 048
  2. OMEPRAZOLE [Concomitant]
  3. TRIMEBUTINE [Concomitant]

REACTIONS (1)
  - Drug ineffective [Unknown]
